FAERS Safety Report 4632965-7 (Version None)
Quarter: 2005Q2

REPORT INFORMATION
  Report Type: 
  Country: None (occurrence: None)
  Receive Date: 20050325
  Receipt Date: 20041214
  Transmission Date: 20051028
  Serious: No
  Sender: FDA-Public Use
  Company Number: USA040155664

PATIENT
  Age: 78 Year
  Sex: Female
  Weight: 76 kg

DRUGS (1)
  1. FORTEO [Suspect]
     Indication: OSTEOPOROSIS
     Dosage: 20 UG DAY
     Dates: start: 20030701

REACTIONS (5)
  - ANXIETY [None]
  - BONE DENSITY DECREASED [None]
  - BONE PAIN [None]
  - INJECTION SITE ERYTHEMA [None]
  - SCIATICA [None]
